FAERS Safety Report 18703540 (Version 1)
Quarter: 2021Q1

REPORT INFORMATION
  Report Type: Spontaneous
  Country: US (occurrence: US)
  Receive Date: 20210105
  Receipt Date: 20210105
  Transmission Date: 20210419
  Serious: No
  Sender: FDA-Public Use
  Company Number: US-BAUSCH-BL-2020-036744

PATIENT
  Age: 43 Year
  Sex: Male
  Weight: 98.97 kg

DRUGS (4)
  1. ARESTIN [Suspect]
     Active Substance: MINOCYCLINE HYDROCHLORIDE
     Indication: GINGIVAL DISORDER
     Dosage: ON TWO REGIONS OF PATIENT^S UPPER AND LOWER JAW, ON 22/OCT/2020 WAS PLACED ON REGION LOWER JAW
     Route: 004
     Dates: start: 20201008
  2. ZYRTEC [Suspect]
     Active Substance: CETIRIZINE HYDROCHLORIDE
     Indication: PRODUCT USED FOR UNKNOWN INDICATION
     Route: 065
     Dates: start: 202011, end: 202011
  3. ZYRTEC [Suspect]
     Active Substance: CETIRIZINE HYDROCHLORIDE
     Dosage: DOSE INCREASED
     Route: 048
     Dates: start: 202011
  4. ARESTIN [Suspect]
     Active Substance: MINOCYCLINE HYDROCHLORIDE

REACTIONS (6)
  - Swelling [Recovering/Resolving]
  - Erythema [Recovering/Resolving]
  - Inflammation [Recovering/Resolving]
  - Skin irritation [Recovering/Resolving]
  - Dry skin [Recovering/Resolving]
  - Skin sensitisation [Recovering/Resolving]

NARRATIVE: CASE EVENT DATE: 2020
